FAERS Safety Report 7008907-6 (Version None)
Quarter: 2010Q3

REPORT INFORMATION
  Report Type: 
  Country: None (occurrence: None)
  Receive Date: 20100923
  Receipt Date: 20100923
  Transmission Date: 20110219
  Serious: Yes (Other)
  Sender: FDA-Public Use
  Company Number: US-RB-013918-10

PATIENT
  Age: 38 Year
  Sex: Female

DRUGS (1)
  1. MUCINEX D [Suspect]
     Dosage: STARTED TAKING PRODUCT OFF AND ON IN THE BEGINNING OF JUL-2010. SHE WAS TAKING 2 TABLETS ONCE A DAY
     Route: 048
     Dates: start: 20100701

REACTIONS (11)
  - ANXIETY [None]
  - CHEST DISCOMFORT [None]
  - DIZZINESS [None]
  - DRUG ABUSE [None]
  - FEELING ABNORMAL [None]
  - FEELING JITTERY [None]
  - INSOMNIA [None]
  - MUSCULAR WEAKNESS [None]
  - NERVOUSNESS [None]
  - OFF LABEL USE [None]
  - RESTLESSNESS [None]
